FAERS Safety Report 11128072 (Version 1)
Quarter: 2015Q2

REPORT INFORMATION
  Report Type: Spontaneous
  Country: AU (occurrence: None)
  Receive Date: 20150519
  Receipt Date: 20150519
  Transmission Date: 20150821
  Serious: Yes (Other)
  Sender: FDA-Public Use
  Company Number: AU-LHC-2015054

PATIENT
  Age: 68 Year
  Sex: Female

DRUGS (4)
  1. OXYGEN. [Suspect]
     Active Substance: OXYGEN
     Indication: SURGERY
     Dosage: 4 L/MIN, INHALATION
     Route: 055
  2. OXYGEN. [Suspect]
     Active Substance: OXYGEN
     Indication: OXYGEN SUPPLEMENTATION
     Dosage: 4 L/MIN, INHALATION
     Route: 055
  3. HYDROXYCHLOROQUINE SULPHATE [Concomitant]
     Active Substance: HYDROXYCHLOROQUINE
  4. NONSTEROIDAL ANTI-INFLAMMATORY DRUG [Concomitant]
     Active Substance: UNSPECIFIED INGREDIENT

REACTIONS (2)
  - Pneumoperitoneum [None]
  - Gastric perforation [None]
